FAERS Safety Report 10523593 (Version 4)
Quarter: 2023Q2

REPORT INFORMATION
  Report Type: Spontaneous
  Country: IT (occurrence: IT)
  Receive Date: 20141017
  Receipt Date: 20230626
  Transmission Date: 20230722
  Serious: Yes (Hospitalization, Other)
  Sender: FDA-Public Use
  Company Number: IT-AUROBINDO-AUR-APL-2014-10757

PATIENT
  Age: 23 Year
  Sex: Female

DRUGS (5)
  1. PAROXETINE [Suspect]
     Active Substance: PAROXETINE
     Indication: Product used for unknown indication
     Dosage: 20 DOSAGE FORM (20 DF, TOTAL)
     Route: 048
     Dates: start: 20140811, end: 20140811
  2. PAROXETINE [Suspect]
     Active Substance: PAROXETINE
     Dosage: 20 DOSAGE FORM (20 DF, TOTAL)
     Route: 048
     Dates: start: 20140811, end: 20140811
  3. DIAZEPAM [Suspect]
     Active Substance: DIAZEPAM
     Indication: Product used for unknown indication
     Dosage: 20 MILLILITER (20 ML, TOTAL)_
     Route: 048
     Dates: start: 20140811, end: 20140811
  4. DIAZEPAM [Suspect]
     Active Substance: DIAZEPAM
     Dosage: 20 MILLILITER (20 ML, TOTAL)
     Route: 048
     Dates: start: 20140811, end: 20140811
  5. PANTOPRAZOLE [Suspect]
     Active Substance: PANTOPRAZOLE
     Indication: Product used for unknown indication
     Dosage: 13 DOSAGE FORM (13 DF, TOTAL)
     Route: 048
     Dates: start: 20140811, end: 20140811

REACTIONS (7)
  - Bradykinesia [Recovered/Resolved]
  - Bradyphrenia [Recovered/Resolved]
  - Hypotension [Recovered/Resolved]
  - Somnolence [Recovered/Resolved]
  - Intentional self-injury [Recovered/Resolved]
  - Drug abuse [Recovered/Resolved]
  - Overdose [Recovered/Resolved]

NARRATIVE: CASE EVENT DATE: 20140811
